FAERS Safety Report 17592143 (Version 14)
Quarter: 2020Q3

REPORT INFORMATION
  Report Type: Report from Study
  Country: JP (occurrence: JP)
  Receive Date: 20200327
  Receipt Date: 20200708
  Transmission Date: 20201102
  Serious: Yes (Death, Hospitalization)
  Sender: FDA-Public Use
  Company Number: JP-EISAI MEDICAL RESEARCH-EC-2020-072351

PATIENT
  Age: 76 Year
  Sex: Female
  Weight: 31 kg

DRUGS (19)
  1. PEMBROLIZUMAB. [Suspect]
     Active Substance: PEMBROLIZUMAB
     Indication: ENDOMETRIAL CANCER
     Route: 042
     Dates: start: 20191121, end: 20200213
  2. NEXIUM [Concomitant]
     Active Substance: ESOMEPRAZOLE MAGNESIUM
     Dates: start: 201401, end: 20200309
  3. NIFEDIPINE L [Concomitant]
     Active Substance: NIFEDIPINE
     Dates: start: 20191130, end: 20200318
  4. LANSOPRAZOLE. [Concomitant]
     Active Substance: LANSOPRAZOLE
     Dates: start: 20200106, end: 20200318
  5. OXINORM [Concomitant]
     Dates: start: 20200320
  6. ROSUVASTATIN DSEP [Concomitant]
     Dates: start: 201401, end: 20200318
  7. REFLEX [Concomitant]
     Active Substance: MIRTAZAPINE
     Dates: start: 20200309, end: 20200318
  8. LOXOPROFEN SODIUM [Concomitant]
     Active Substance: LOXOPROFEN SODIUM
     Dates: start: 20200213, end: 20200320
  9. TRAMAL [Concomitant]
     Active Substance: TRAMADOL
     Dates: start: 20200305, end: 20200309
  10. AZUNOL [Concomitant]
     Dates: start: 20200305, end: 20200318
  11. LENVATINIB [Suspect]
     Active Substance: LENVATINIB
     Indication: ENDOMETRIAL CANCER
     Dosage: STARTING AT 20 MG, FLUCTUATED DOSES
     Route: 048
     Dates: start: 20191121, end: 20200316
  12. TARLIGE [Concomitant]
     Active Substance: MIROGABALIN BESYLATE
     Dates: start: 20200309, end: 20200320
  13. SOLDEM 3A [Concomitant]
     Active Substance: CARBOHYDRATES\POTASSIUM CHLORIDE\SODIUM CHLORIDE\SODIUM LACTATE
     Route: 042
     Dates: start: 20200320, end: 20200320
  14. THYRADIN?S [Concomitant]
     Active Substance: LEVOTHYROXINE
     Dates: start: 20200221, end: 20200318
  15. BROTIZOLAM [Concomitant]
     Active Substance: BROTIZOLAM
     Dates: start: 20200309, end: 20200318
  16. OXYCONTIN [Concomitant]
     Active Substance: OXYCODONE HYDROCHLORIDE
     Dates: start: 20200320, end: 20200322
  17. LENVATINIB [Suspect]
     Active Substance: LENVATINIB
     Route: 048
     Dates: start: 20200317, end: 20200317
  18. PEMBROLIZUMAB. [Suspect]
     Active Substance: PEMBROLIZUMAB
     Route: 042
     Dates: start: 20200305, end: 20200305
  19. LEVOFLOXACIN. [Concomitant]
     Active Substance: LEVOFLOXACIN
     Dates: start: 20200320, end: 20200320

REACTIONS (1)
  - Decreased appetite [Recovered/Resolved]

NARRATIVE: CASE EVENT DATE: 20200323
